FAERS Safety Report 5344128-0 (Version None)
Quarter: 2007Q2

REPORT INFORMATION
  Report Type: 
  Country: None (occurrence: None)
  Receive Date: 20070531
  Receipt Date: 20070531
  Transmission Date: 20071010
  Serious: Yes (Other)
  Sender: FDA-Public Use
  Company Number: None

PATIENT
  Age: 44 Year
  Sex: Female
  Weight: 99.3377 kg

DRUGS (1)
  1. INFLIXIMAB CENTERCOR [Suspect]
     Indication: RHEUMATOID ARTHRITIS
     Dosage: 500MG 6 WEEKS IV DRIP
     Route: 041
     Dates: start: 20060830, end: 20070424

REACTIONS (3)
  - GAIT DISTURBANCE [None]
  - MULTIPLE SCLEROSIS [None]
  - MUSCULAR WEAKNESS [None]
